FAERS Safety Report 6360824-0 (Version None)
Quarter: 2009Q3

REPORT INFORMATION
  Report Type: 
  Country: None (occurrence: None)
  Receive Date: 20090915
  Receipt Date: 20090915
  Transmission Date: 20100115
  Serious: Yes (Other)
  Sender: FDA-Public Use
  Company Number: None

PATIENT
  Sex: Female
  Weight: 79.3795 kg

DRUGS (5)
  1. HEPARIN [Suspect]
     Dosage: 2-3 ML 3-4 TIMES DAILY IV
     Route: 042
     Dates: start: 20090904, end: 20090913
  2. SALINE [Concomitant]
  3. CLINDAMYCIN [Concomitant]
  4. ONDANSETRON [Concomitant]
  5. VANCOMYCIN [Concomitant]

REACTIONS (1)
  - PRURITUS [None]
